FAERS Safety Report 10883473 (Version 2)
Quarter: 2015Q2

REPORT INFORMATION
  Report Type: Spontaneous
  Country: DE (occurrence: DE)
  Receive Date: 20150303
  Receipt Date: 20150429
  Transmission Date: 20150821
  Serious: Yes (Hospitalization)
  Sender: FDA-Public Use
  Company Number: DE-SA-2015SA025498

PATIENT
  Sex: Female
  Weight: 72.5 kg

DRUGS (4)
  1. AFLIBERCEPT [Suspect]
     Active Substance: AFLIBERCEPT
     Indication: GLIOBLASTOMA MULTIFORME
     Route: 065
     Dates: start: 20140910, end: 20140910
  2. CCNU [Concomitant]
     Active Substance: LOMUSTINE
  3. AFLIBERCEPT [Suspect]
     Active Substance: AFLIBERCEPT
     Indication: GLIOBLASTOMA MULTIFORME
     Route: 065
  4. TEMOZOLOMIDE. [Concomitant]
     Active Substance: TEMOZOLOMIDE
     Indication: GLIOBLASTOMA MULTIFORME

REACTIONS (7)
  - Acute kidney injury [Unknown]
  - Cardiac failure [Unknown]
  - Tooth infection [Unknown]
  - Hypokalaemia [Unknown]
  - Off label use [Unknown]
  - Pneumonia [Unknown]
  - Pancytopenia [Unknown]

NARRATIVE: CASE EVENT DATE: 20140930
